FAERS Safety Report 7621378-1 (Version None)
Quarter: 2011Q3

REPORT INFORMATION
  Report Type: 
  Country: None (occurrence: None)
  Receive Date: 20110719
  Receipt Date: 20110714
  Transmission Date: 20111222
  Serious: Yes (Other)
  Sender: FDA-Public Use
  Company Number: US-PFIZER INC-2011082189

PATIENT
  Sex: Female

DRUGS (12)
  1. OMEPRAZOLE [Concomitant]
     Indication: GASTROOESOPHAGEAL REFLUX DISEASE
     Dosage: UNK
     Dates: start: 19980101
  2. SEROQUEL [Concomitant]
     Indication: SCHIZOPHRENIA
     Dosage: UNK
     Dates: start: 19980101, end: 20100101
  3. LORATADINE [Concomitant]
     Indication: HYPERSENSITIVITY
     Dosage: UNK
     Dates: start: 19980101
  4. LOXAPINE [Concomitant]
     Indication: BIPOLAR DISORDER
     Dosage: UNK
     Dates: start: 19980101
  5. LORAZEPAM [Concomitant]
     Indication: AGGRESSION
     Dosage: UNK
     Dates: start: 19980101
  6. MEDROXYPROGESTERONE [Concomitant]
     Indication: HORMONE REPLACEMENT THERAPY
     Dosage: UNK
     Dates: start: 19980101
  7. FLUOXETINE [Concomitant]
     Indication: DEPRESSION
     Dosage: UNK
     Dates: start: 19980101
  8. TRAMADOL [Concomitant]
     Indication: PAIN
  9. CHANTIX [Suspect]
     Indication: SMOKING CESSATION THERAPY
     Dosage: STARTER PACK
     Route: 048
     Dates: start: 20081114, end: 20081215
  10. FLUOXETINE [Concomitant]
  11. TRAMADOL [Concomitant]
     Indication: ARTHRITIS
     Dosage: UNK
     Dates: start: 19980101, end: 20100101
  12. SEROQUEL [Concomitant]

REACTIONS (4)
  - DEPRESSION [None]
  - SUICIDAL IDEATION [None]
  - AGGRESSION [None]
  - SCHIZOPHRENIA [None]
